FAERS Safety Report 17033079 (Version 1)
Quarter: 2019Q4

REPORT INFORMATION
  Report Type: Report from Study
  Country: CN (occurrence: CN)
  Receive Date: 20191114
  Receipt Date: 20191114
  Transmission Date: 20200122
  Serious: Yes (Hospitalization)
  Sender: FDA-Public Use
  Company Number: CN-BRISTOL-MYERS SQUIBB COMPANY-BMS-2019-106856

PATIENT
  Age: 82 Year
  Sex: Male

DRUGS (1)
  1. NIVOLUMAB [Suspect]
     Active Substance: NIVOLUMAB
     Indication: NON-SMALL CELL LUNG CANCER
     Dosage: 80 MILLIGRAM, Q2WK (2.4 MG/KG)
     Route: 042
     Dates: start: 20190722

REACTIONS (4)
  - Asthenia [Unknown]
  - Gait disturbance [Unknown]
  - Tachypnoea [Unknown]
  - Cough [Unknown]

NARRATIVE: CASE EVENT DATE: 201911
